FAERS Safety Report 12108401 (Version 1)
Quarter: 2016Q1

REPORT INFORMATION
  Report Type: Spontaneous
  Country: US (occurrence: US)
  Receive Date: 20160224
  Receipt Date: 20160224
  Transmission Date: 20160526
  Serious: Yes (Other)
  Sender: FDA-Public Use
  Company Number: US-BEH-2016058910

PATIENT
  Sex: Female
  Weight: 87 kg

DRUGS (14)
  1. VITAMIN B12 [Concomitant]
     Active Substance: CYANOCOBALAMIN
  2. LIDOCAINE. [Concomitant]
     Active Substance: LIDOCAINE
  3. CLINDAMYCIN [Concomitant]
     Active Substance: CLINDAMYCIN\CLINDAMYCIN PHOSPHATE
  4. DIPHENHYDRAMINE. [Concomitant]
     Active Substance: DIPHENHYDRAMINE
  5. IBUPROFEN. [Concomitant]
     Active Substance: IBUPROFEN
  6. VANCOMYCIN [Concomitant]
     Active Substance: VANCOMYCIN
  7. PROBIOTIC [Concomitant]
     Active Substance: PROBIOTICS NOS
  8. HIZENTRA [Suspect]
     Active Substance: HUMAN IMMUNOGLOBULIN G
     Indication: SELECTIVE IGG SUBCLASS DEFICIENCY
     Dosage: 10 GM VIALS
     Route: 058
  9. EPIPEN [Concomitant]
     Active Substance: EPINEPHRINE
  10. MEPRON [Concomitant]
     Active Substance: ATOVAQUONE
  11. ACETAMINOPHEN. [Concomitant]
     Active Substance: ACETAMINOPHEN
  12. XANAX [Concomitant]
     Active Substance: ALPRAZOLAM
  13. DIFLUCAN [Concomitant]
     Active Substance: FLUCONAZOLE
  14. AZITHROMYCIN ANHYDROUS. [Concomitant]
     Active Substance: AZITHROMYCIN ANHYDROUS

REACTIONS (1)
  - Lyme disease [Unknown]
